FAERS Safety Report 4923269-3 (Version None)
Quarter: 2006Q1

REPORT INFORMATION
  Report Type: 
  Country: None (occurrence: None)
  Receive Date: 20060227
  Receipt Date: 20041117
  Transmission Date: 20060701
  Serious: Yes (Hospitalization)
  Sender: FDA-Public Use
  Company Number: 2004-11-0301

PATIENT
  Age: 31 Year
  Sex: Male

DRUGS (1)
  1. BUPRENORPHINE HCL [Suspect]
     Indication: DRUG USE FOR UNKNOWN INDICATION
     Dosage: DOSAGE UNKNOWN
     Route: 065
     Dates: end: 19990724

REACTIONS (10)
  - ALANINE AMINOTRANSFERASE INCREASED [None]
  - ASPARTATE AMINOTRANSFERASE INCREASED [None]
  - BLOOD ALKALINE PHOSPHATASE INCREASED [None]
  - CARDIAC VALVE DISEASE [None]
  - CARDIAC VALVE VEGETATION [None]
  - ENDOCARDITIS STAPHYLOCOCCAL [None]
  - HEADACHE [None]
  - INTENTIONAL DRUG MISUSE [None]
  - LEUKOCYTOSIS [None]
  - MYALGIA [None]
